FAERS Safety Report 9553723 (Version 3)
Quarter: 2013Q4

REPORT INFORMATION
  Report Type: Spontaneous
  Country: GB (occurrence: None)
  Receive Date: 20130923
  Receipt Date: 20131105
  Transmission Date: 20140711
  Serious: Yes (Hospitalization)
  Sender: FDA-Public Use
  Company Number: AG-2013-014713

PATIENT
  Age: 79 Year
  Sex: Male
  Weight: 81.2 kg

DRUGS (16)
  1. CHLORAMBUCIL [Suspect]
     Indication: CHRONIC LYMPHOCYTIC LEUKAEMIA
     Dosage: 140MG PER DAY (140 MILLIGRAM, 1 IN 1 DAYS), ORAL?
     Route: 048
     Dates: start: 20130606
  2. IBUPROFEN (IBUPROFEN) (UNKNOWN) [Concomitant]
     Indication: CHRONIC LYMPHOCYTIC LEUKAEMIA
     Dosage: 1000MG PER DAY (1000 MILLIGRAM, 1 IN 1 DAYS), INTRAVENOUS (NOT OTHERWISE SPECIFIED)?
     Route: 042
     Dates: start: 20130606
  3. PARACETAMOL (PARACETAMOL) (UNKNOWN) [Concomitant]
  4. CHLORPHENAMINE (CHLORPHENAMINE) (UNKNOWN) [Concomitant]
  5. PREDNISOLONE (PREDNISOLONE) (UNKNOWN) [Concomitant]
  6. ALLOPURINOL (ALLOPURINOL) (UNKNOWN) [Concomitant]
  7. METOCLOPRAMIDE (METOCLOPRAMIDE) (UNKNOWN) [Concomitant]
  8. ACICLOVIR (ACICLOVIR) (UNKNOWN)? [Concomitant]
  9. PROCHLORPERAZINE (PROCHLORPERAZINE) (UNKNOWN) [Concomitant]
  10. DOMPERIDONE (DOMERIDONE) (UNKNOWN) [Concomitant]
  11. CODEINE PHOSPHATE (CODEINE) (UNKNOWN) [Concomitant]
  12. SENNA (SENNA GLYCOSIDES) (UNKNOWN) [Concomitant]
  13. SERETIDE (FLUTICASONE, SALMETEROL) (UNKNOWN) [Concomitant]
  14. SPIRIVA (TIOTROPIUM BROMIDE) (UNKNOWN) [Concomitant]
  15. G-CSF (COLONY STIMULATIING FACTORS) (UNKNOWN) [Concomitant]
  16. ALLOPURINOL (ALLOPURINOL) (UNKNOWN) [Concomitant]

REACTIONS (4)
  - Anaemia [None]
  - Neutropenia [None]
  - Dyspnoea [None]
  - Dizziness [None]
